FAERS Safety Report 8621671-X (Version None)
Quarter: 2012Q3

REPORT INFORMATION
  Report Type: 
  Country: None (occurrence: None)
  Receive Date: 20120821
  Receipt Date: 20120821
  Transmission Date: 20120928
  Serious: Yes (Other)
  Sender: FDA-Public Use
  Company Number: None

PATIENT
  Age: 60 Year
  Sex: Male
  Weight: 92 kg

DRUGS (1)
  1. XARELTO [Suspect]
     Indication: DEEP VEIN THROMBOSIS
     Dosage: 20 MR DAILY PO
     Route: 048
     Dates: start: 20120612, end: 20120712

REACTIONS (6)
  - ASTHENIA [None]
  - INTERNATIONAL NORMALISED RATIO DECREASED [None]
  - PAIN IN EXTREMITY [None]
  - HEADACHE [None]
  - OEDEMA PERIPHERAL [None]
  - PROTHROMBIN LEVEL DECREASED [None]
